FAERS Safety Report 17279299 (Version 2)
Quarter: 2020Q1

REPORT INFORMATION
  Report Type: Spontaneous
  Country: US (occurrence: US)
  Receive Date: 20200116
  Receipt Date: 20200123
  Transmission Date: 20200409
  Serious: No
  Sender: FDA-Public Use
  Company Number: US-009507513-2001USA005337

PATIENT
  Sex: Female

DRUGS (1)
  1. FOSAMAX [Suspect]
     Active Substance: ALENDRONATE SODIUM

REACTIONS (19)
  - Peripheral swelling [Unknown]
  - Swelling of eyelid [Unknown]
  - Paraesthesia [Unknown]
  - Arthralgia [Unknown]
  - Asthenia [Unknown]
  - Lip swelling [Unknown]
  - Hypersensitivity [Unknown]
  - Gastrointestinal disorder [Unknown]
  - Fatigue [Unknown]
  - Pain in extremity [Unknown]
  - Musculoskeletal stiffness [Unknown]
  - Rash [Unknown]
  - Eye pruritus [Unknown]
  - Vaginal infection [Unknown]
  - Nervous system disorder [Unknown]
  - Nausea [Unknown]
  - Infection [Unknown]
  - Joint swelling [Unknown]
  - Drug ineffective [Unknown]
